FAERS Safety Report 8832745 (Version 1)
Quarter: 2012Q4

REPORT INFORMATION
  Report Type: 
  Country: US (occurrence: US)
  Receive Date: 20121010
  Receipt Date: 20121010
  Transmission Date: 20130627
  Serious: No
  Sender: FDA-Public Use
  Company Number: US-BIOGENIDEC-2008BI022148

PATIENT
  Age: 45 None
  Sex: Female

DRUGS (2)
  1. TYSABRI [Suspect]
     Indication: MULTIPLE SCLEROSIS
     Route: 042
     Dates: start: 20080403, end: 20080501
  2. TYSABRI [Suspect]
     Indication: MULTIPLE SCLEROSIS
     Route: 042
     Dates: start: 20120724, end: 20120821

REACTIONS (8)
  - Visual impairment [Recovered/Resolved]
  - Muscle spasms [Recovered/Resolved]
  - Hypoaesthesia [Recovered/Resolved]
  - Erythema [Not Recovered/Not Resolved]
  - Chest discomfort [Recovered/Resolved]
  - Hypersensitivity [Not Recovered/Not Resolved]
  - Malaise [Unknown]
  - Multiple sclerosis relapse [Recovered/Resolved]
